FAERS Safety Report 25245595 (Version 1)
Quarter: 2025Q2

REPORT INFORMATION
  Report Type: Spontaneous
  Country: DE (occurrence: DE)
  Receive Date: 20250428
  Receipt Date: 20250428
  Transmission Date: 20250717
  Serious: Yes (Other)
  Sender: MYLAN
  Company Number: DE-MYLANLABS-2025M1035716

PATIENT
  Age: 17 Year

DRUGS (10)
  1. MYCOPHENOLATE MOFETIL [Suspect]
     Active Substance: MYCOPHENOLATE MOFETIL
     Indication: Anti-melanoma differentiation-associated protein 5 antibody positive
  2. MYCOPHENOLATE MOFETIL [Suspect]
     Active Substance: MYCOPHENOLATE MOFETIL
     Indication: Dermatomyositis
  3. METHYLPREDNISOLONE [Suspect]
     Active Substance: METHYLPREDNISOLONE
     Indication: Anti-melanoma differentiation-associated protein 5 antibody positive
  4. METHYLPREDNISOLONE [Suspect]
     Active Substance: METHYLPREDNISOLONE
     Indication: Dermatomyositis
  5. PREDNISONE [Suspect]
     Active Substance: PREDNISONE
     Indication: Anti-melanoma differentiation-associated protein 5 antibody positive
  6. PREDNISONE [Suspect]
     Active Substance: PREDNISONE
     Indication: Dermatomyositis
  7. RITUXIMAB [Suspect]
     Active Substance: RITUXIMAB
     Indication: Anti-melanoma differentiation-associated protein 5 antibody positive
  8. RITUXIMAB [Suspect]
     Active Substance: RITUXIMAB
     Indication: Dermatomyositis
  9. TOFACITINIB [Suspect]
     Active Substance: TOFACITINIB
     Indication: Anti-melanoma differentiation-associated protein 5 antibody positive
  10. TOFACITINIB [Suspect]
     Active Substance: TOFACITINIB
     Indication: Dermatomyositis

REACTIONS (3)
  - Bronchopulmonary aspergillosis [Unknown]
  - Cytomegalovirus infection reactivation [Unknown]
  - Off label use [Unknown]
